FAERS Safety Report 4295942-4 (Version None)
Quarter: 2004Q1

REPORT INFORMATION
  Report Type: 
  Country: None (occurrence: None)
  Receive Date: 20040212
  Receipt Date: 20040203
  Transmission Date: 20041129
  Serious: Yes (Death, Hospitalization)
  Sender: FDA-Public Use
  Company Number: 04P-056-0246910-00

PATIENT
  Age: 83 Year
  Sex: Male

DRUGS (8)
  1. TRICOR [Suspect]
     Indication: DRUG USE FOR UNKNOWN INDICATION
     Dosage: 100 MG; ORAL
     Route: 048
     Dates: end: 20031104
  2. ASPIRIN [Concomitant]
  3. NAFTIDROFURYL OXALATE [Concomitant]
  4. SECTRAL [Concomitant]
  5. CYPROTERONE ACETATE [Concomitant]
  6. AMLODIPINE BESYLATE [Concomitant]
  7. ISOPHANE INSULIN [Concomitant]
  8. GLYCERYL TRINITRATE [Concomitant]

REACTIONS (8)
  - ALPHA 1 FOETOPROTEIN INCREASED [None]
  - COMPUTERISED TOMOGRAM ABNORMAL [None]
  - GALLBLADDER DISORDER [None]
  - HAEMOCHROMATOSIS [None]
  - HEPATITIS FULMINANT [None]
  - LIPASE DECREASED [None]
  - PROTHROMBIN TIME SHORTENED [None]
  - VOMITING [None]
